FAERS Safety Report 10531859 (Version 1)
Quarter: 2014Q4

REPORT INFORMATION
  Report Type: Spontaneous
  Country: US (occurrence: US)
  Receive Date: 20141021
  Receipt Date: 20141021
  Transmission Date: 20150529
  Serious: Yes (Other)
  Sender: FDA-Public Use
  Company Number: US-NAPPMUNDI-USA-2014-0114694

PATIENT
  Age: 24 Year
  Sex: Female

DRUGS (1)
  1. OXYCODONE HYDROCHLORIDE (SIMILAR TO NDA 22-272) [Suspect]
     Active Substance: OXYCODONE HYDROCHLORIDE
     Indication: POST HERPETIC NEURALGIA
     Dosage: UNKNOWN
     Route: 048

REACTIONS (5)
  - Rhinorrhoea [Unknown]
  - Influenza like illness [Unknown]
  - Drug dependence [Unknown]
  - Intentional product use issue [Unknown]
  - Rash [Unknown]

NARRATIVE: CASE EVENT DATE: 20140605
